FAERS Safety Report 5480065-9 (Version None)
Quarter: 2007Q4

REPORT INFORMATION
  Report Type: 
  Country: None (occurrence: None)
  Receive Date: 20071008
  Receipt Date: 20070926
  Transmission Date: 20080405
  Serious: Yes (Other)
  Sender: FDA-Public Use
  Company Number: ES-PFIZER INC-2007081370

PATIENT
  Age: 20 Year
  Sex: Female

DRUGS (1)
  1. CHAMPIX [Suspect]
     Indication: SMOKING CESSATION THERAPY
     Route: 048
     Dates: start: 20070916, end: 20070901

REACTIONS (4)
  - DIZZINESS [None]
  - MIGRAINE [None]
  - MONOPLEGIA [None]
  - VOMITING [None]
